FAERS Safety Report 12956049 (Version 2)
Quarter: 2016Q4

REPORT INFORMATION
  Report Type: Report from Study
  Country: CA (occurrence: CA)
  Receive Date: 20161118
  Receipt Date: 20161121
  Transmission Date: 20170207
  Serious: Yes (Death, Hospitalization, Other)
  Sender: FDA-Public Use
  Company Number: CA-AMGEN-CANNI2016163400

PATIENT
  Age: 60 Year
  Sex: Male

DRUGS (1)
  1. CARFILZOMIB [Suspect]
     Active Substance: CARFILZOMIB
     Indication: PRODUCT USED FOR UNKNOWN INDICATION
     Dosage: 32 UNK, DAY ONE ONLY
     Route: 042
     Dates: start: 20160125, end: 20160125

REACTIONS (1)
  - Klebsiella sepsis [Fatal]

NARRATIVE: CASE EVENT DATE: 20160126
